FAERS Safety Report 16632943 (Version 2)
Quarter: 2019Q3

REPORT INFORMATION
  Report Type: Spontaneous
  Country: US (occurrence: US)
  Receive Date: 20190725
  Receipt Date: 20190730
  Transmission Date: 20191004
  Serious: No
  Sender: FDA-Public Use
  Company Number: US-PFIZER INC-2019315292

PATIENT
  Age: 41 Year
  Sex: Male

DRUGS (1)
  1. DEPO-PROVERA [Suspect]
     Active Substance: MEDROXYPROGESTERONE ACETATE
     Dosage: UNK, WEEKLY (MAKES 175 A WEEK)

REACTIONS (4)
  - Pain [Unknown]
  - Product use issue [Unknown]
  - Malaise [Unknown]
  - Off label use [Unknown]
